FAERS Safety Report 9478551 (Version 3)
Quarter: 2013Q4

REPORT INFORMATION
  Report Type: Report from Study
  Country: DK (occurrence: DK)
  Receive Date: 20130827
  Receipt Date: 20131121
  Transmission Date: 20140711
  Serious: Yes (Hospitalization, Other)
  Sender: FDA-Public Use
  Company Number: DK-VERTEX PHARMACEUTICALS INC-2013-008861

PATIENT
  Age: 33 Year
  Sex: Male
  Weight: 67 kg

DRUGS (5)
  1. VX-809 FDC [Suspect]
     Indication: CYSTIC FIBROSIS
     Dosage: 600 MG, QD
     Route: 048
     Dates: start: 20130812, end: 20130817
  2. VX-770 FDC [Suspect]
     Indication: CYSTIC FIBROSIS
     Dosage: 250 MG, Q12H
     Route: 048
     Dates: start: 20130812, end: 20130817
  3. VX-770 [Suspect]
     Indication: CYSTIC FIBROSIS
     Dosage: 250 MG, SINGLE
     Route: 048
     Dates: start: 20130812, end: 20130817
  4. DICILLIN [Concomitant]
     Indication: STAPHYLOCOCCAL INFECTION
     Dosage: 1000 MG, TID
     Route: 048
     Dates: start: 20111021, end: 20130814
  5. TOBI [Concomitant]
     Indication: STAPHYLOCOCCAL INFECTION
     Dosage: 112 MG, BID
     Dates: start: 20111214, end: 20130819

REACTIONS (1)
  - Infective pulmonary exacerbation of cystic fibrosis [Recovered/Resolved]
